FAERS Safety Report 6811893-2 (Version None)
Quarter: 2010Q3

REPORT INFORMATION
  Report Type: 
  Country: None (occurrence: None)
  Receive Date: 20100701
  Receipt Date: 20100622
  Transmission Date: 20110219
  Serious: Yes (Other)
  Sender: FDA-Public Use
  Company Number: US-JNJFOC-20100607180

PATIENT
  Sex: Female
  Weight: 55.34 kg

DRUGS (7)
  1. DURAGESIC-100 [Suspect]
     Indication: PAIN
     Route: 062
  2. DURAGESIC-100 [Suspect]
     Route: 062
  3. PHENOBARBITAL TAB [Concomitant]
     Indication: CONVULSION
     Route: 048
  4. MS CONTIN [Concomitant]
     Indication: PAIN
     Route: 065
  5. MS CONTIN [Concomitant]
     Route: 065
  6. RANITIDINE [Concomitant]
     Indication: ULCER
     Route: 048
  7. FIORICET [Concomitant]
     Indication: MIGRAINE
     Route: 048

REACTIONS (9)
  - BREAST CYST [None]
  - DEPRESSION [None]
  - DRUG ADMINISTERED AT INAPPROPRIATE SITE [None]
  - DUPUYTREN'S CONTRACTURE [None]
  - HYPERTENSION [None]
  - INCONTINENCE [None]
  - INSOMNIA [None]
  - PRODUCT PACKAGING ISSUE [None]
  - WRONG TECHNIQUE IN DRUG USAGE PROCESS [None]
